FAERS Safety Report 18168152 (Version 2)
Quarter: 2021Q4

REPORT INFORMATION
  Report Type: Spontaneous
  Country: US (occurrence: US)
  Receive Date: 20200818
  Receipt Date: 20211004
  Transmission Date: 20220303
  Serious: No
  Sender: FDA-Public Use
  Company Number: US-OTSUKA-2020_013036

PATIENT

DRUGS (1)
  1. ABILIFY MAINTENA [Suspect]
     Active Substance: ARIPIPRAZOLE
     Indication: Depression
     Dosage: 400 MG, QM
     Route: 065

REACTIONS (3)
  - Product use in unapproved indication [Unknown]
  - Insurance issue [Unknown]
  - Inability to afford medication [Unknown]
